FAERS Safety Report 16424478 (Version 1)
Quarter: 2019Q2

REPORT INFORMATION
  Report Type: Spontaneous
  Country: DE (occurrence: DE)
  Receive Date: 20190613
  Receipt Date: 20190613
  Transmission Date: 20190711
  Serious: Yes (Other)
  Sender: FDA-Public Use
  Company Number: DE-BAYER-2019-111127

PATIENT
  Age: 48 Year
  Sex: Female

DRUGS (2)
  1. MIRENA [Suspect]
     Active Substance: LEVONORGESTREL
     Indication: CONTRACEPTION
     Dosage: 20 MCG/24HR, CONT
     Route: 015
  2. KYLEENA [Suspect]
     Active Substance: LEVONORGESTREL
     Indication: CONTRACEPTION
     Dosage: 17.5 MCG/24HR, CONT
     Route: 015
     Dates: start: 201905

REACTIONS (6)
  - Autoimmune thyroiditis [Not Recovered/Not Resolved]
  - Insomnia [Not Recovered/Not Resolved]
  - Hair disorder [Not Recovered/Not Resolved]
  - Progesterone decreased [None]
  - Skin disorder [Not Recovered/Not Resolved]
  - Progesterone decreased [None]

NARRATIVE: CASE EVENT DATE: 201905
